FAERS Safety Report 25486106 (Version 1)
Quarter: 2025Q2

REPORT INFORMATION
  Report Type: Spontaneous
  Country: US (occurrence: US)
  Receive Date: 20250626
  Receipt Date: 20250626
  Transmission Date: 20250717
  Serious: No
  Sender: GALDERMA
  Company Number: US-GALDERMA-US2025007750

PATIENT

DRUGS (7)
  1. NEMLUVIO [Suspect]
     Active Substance: NEMOLIZUMAB-ILTO
     Indication: Eczema
     Route: 058
     Dates: start: 20250411, end: 20250411
  2. HYDROCHLOROTHIAZIDE\LISINOPRIL [Concomitant]
     Active Substance: HYDROCHLOROTHIAZIDE\LISINOPRIL
     Indication: Hypertension
     Route: 065
  3. LISINOPRIL [Concomitant]
     Active Substance: LISINOPRIL
     Indication: Hypertension
     Route: 065
  4. MIRCETTE [Concomitant]
     Active Substance: DESOGESTREL\ETHINYL ESTRADIOL
     Indication: Contraception
     Route: 065
  5. BUSPIRONE [Concomitant]
     Active Substance: BUSPIRONE HYDROCHLORIDE
     Indication: Anxiety
     Route: 065
  6. BUSPIRONE [Concomitant]
     Active Substance: BUSPIRONE HYDROCHLORIDE
     Indication: Depression
  7. CITALOPRAM [Concomitant]
     Active Substance: CITALOPRAM
     Indication: Anxiety
     Route: 065

REACTIONS (3)
  - Pruritus [Unknown]
  - Inappropriate schedule of product administration [Recovered/Resolved]
  - Device malfunction [Recovered/Resolved]

NARRATIVE: CASE EVENT DATE: 20250101
